FAERS Safety Report 18751936 (Version 1)
Quarter: 2021Q1

REPORT INFORMATION
  Report Type: Spontaneous
  Country: US (occurrence: US)
  Receive Date: 20210118
  Receipt Date: 20210118
  Transmission Date: 20210419
  Serious: Yes (Other)
  Sender: FDA-Public Use
  Company Number: US-BRISTOL-MYERS SQUIBB COMPANY-BMS-2021-002564

PATIENT
  Age: 72 Year
  Sex: Male

DRUGS (3)
  1. ELIQUIS [Suspect]
     Active Substance: APIXABAN
     Dosage: BROKE THE TABLET IN HALF
     Dates: start: 20210111
  2. ELIQUIS [Suspect]
     Active Substance: APIXABAN
     Indication: CEREBROVASCULAR ACCIDENT PROPHYLAXIS
     Dosage: 5 MILLIGRAM, BID
     Route: 048
     Dates: start: 20210106
  3. ELIQUIS [Suspect]
     Active Substance: APIXABAN
     Dosage: 5 MG AT 8.30 AM AND THEN TOOK HALF A DOSE BY BREAKING THE TABLET IN HALF AT NIGHT (2.5 MG)
     Route: 048
     Dates: start: 20210110

REACTIONS (3)
  - Dizziness [Unknown]
  - Intentional product misuse [Unknown]
  - Loss of consciousness [Unknown]

NARRATIVE: CASE EVENT DATE: 20210108
